FAERS Safety Report 25196653 (Version 1)
Quarter: 2025Q2

REPORT INFORMATION
  Report Type: Spontaneous
  Country: US (occurrence: US)
  Receive Date: 20250415
  Receipt Date: 20250415
  Transmission Date: 20250716
  Serious: Yes (Life-Threatening, Hospitalization, Other)
  Sender: UNICHEM
  Company Number: US-UNICHEM LABORATORIES LIMITED-UNI-2025-US-001810

PATIENT

DRUGS (2)
  1. LACOSAMIDE [Suspect]
     Active Substance: LACOSAMIDE
     Indication: Product used for unknown indication
     Route: 048
  2. GABAPENTIN [Suspect]
     Active Substance: GABAPENTIN
     Indication: Product used for unknown indication
     Route: 048

REACTIONS (5)
  - Lactic acidosis [Recovering/Resolving]
  - Ventricular arrhythmia [Recovering/Resolving]
  - Intentional product use issue [Unknown]
  - Cardiac arrest [Recovering/Resolving]
  - Status epilepticus [Recovering/Resolving]
